FAERS Safety Report 8366944-3 (Version None)
Quarter: 2012Q2

REPORT INFORMATION
  Report Type: 
  Country: None (occurrence: None)
  Receive Date: 20120517
  Receipt Date: 20120503
  Transmission Date: 20120825
  Serious: Yes (Hospitalization, Other)
  Sender: FDA-Public Use
  Company Number: GB-ROCHE-800884

PATIENT
  Age: 34 Year
  Sex: Female
  Weight: 99.8 kg

DRUGS (7)
  1. LASOPRAZOLE [Suspect]
     Indication: GASTROOESOPHAGEAL REFLUX PROPHYLAXIS
     Dosage: FREQUENCY: 1 DAY
     Route: 048
     Dates: start: 20100907, end: 20100928
  2. DEXAMETHASONE TAB [Suspect]
     Indication: ANTIEMETIC SUPPORTIVE CARE
     Route: 048
     Dates: start: 20100905, end: 20101010
  3. IMMUNE GLOBULIN IV NOS [Suspect]
     Indication: HAEMATOLOGY TEST ABNORMAL
     Route: 041
     Dates: start: 20100922, end: 20100923
  4. NPLATE [Suspect]
     Indication: IDIOPATHIC THROMBOCYTOPENIC PURPURA
     Route: 058
     Dates: start: 20100920, end: 20100920
  5. RITUXIMAB [Suspect]
     Indication: HAEMATOLOGY TEST ABNORMAL
     Route: 041
     Dates: start: 20100917, end: 20100924
  6. NORETHINDRONE [Suspect]
     Indication: PRODUCT USED FOR UNKNOWN INDICATION
     Route: 048
     Dates: start: 20100922, end: 20100928
  7. TRANEXAMIC ACID [Suspect]
     Indication: PRODUCT USED FOR UNKNOWN INDICATION
     Route: 048
     Dates: start: 20100922, end: 20100928

REACTIONS (7)
  - HAEMOGLOBIN DECREASED [None]
  - PURPURA [None]
  - VAGINAL HAEMORRHAGE [None]
  - RECTAL HAEMORRHAGE [None]
  - RASH MACULO-PAPULAR [None]
  - RASH ERYTHEMATOUS [None]
  - MELAENA [None]
